FAERS Safety Report 16771572 (Version 1)
Quarter: 2019Q3

REPORT INFORMATION
  Report Type: Spontaneous
  Country: US (occurrence: US)
  Receive Date: 20190904
  Receipt Date: 20190904
  Transmission Date: 20191005
  Serious: No
  Sender: FDA-Public Use
  Company Number: US-PFIZER INC-2019377283

PATIENT
  Age: 66 Year
  Sex: Male

DRUGS (1)
  1. HALCION [Suspect]
     Active Substance: TRIAZOLAM
     Dosage: 0.25 MG, 1X/DAY

REACTIONS (4)
  - Hyperhidrosis [Unknown]
  - Withdrawal syndrome [Unknown]
  - Memory impairment [Unknown]
  - Anxiety [Unknown]
